FAERS Safety Report 5616227-7 (Version None)
Quarter: 2008Q1

REPORT INFORMATION
  Report Type: 
  Country: None (occurrence: None)
  Receive Date: 20080206
  Receipt Date: 20080128
  Transmission Date: 20080703
  Serious: Yes (Hospitalization)
  Sender: FDA-Public Use
  Company Number: FR-GILEAD-2008-0015132

PATIENT
  Sex: Male
  Weight: 60 kg

DRUGS (8)
  1. TRUVADA [Suspect]
     Indication: HIV INFECTION
     Route: 048
     Dates: start: 20080107
  2. SUSTIVA [Concomitant]
     Indication: HIV INFECTION
     Route: 048
     Dates: start: 20080107
  3. RIFATER [Concomitant]
     Indication: TUBERCULOSIS
     Route: 048
     Dates: start: 20071112
  4. RENUTRYL [Concomitant]
     Indication: MALNUTRITION
     Route: 048
     Dates: start: 20071113
  5. CACIT D3 [Concomitant]
     Indication: HYPOCALCAEMIA
     Route: 048
     Dates: start: 20071116
  6. ROVALCYTE [Concomitant]
     Indication: PROPHYLAXIS
     Route: 048
     Dates: start: 20071120
  7. B1B6 [Concomitant]
     Indication: HYPOVITAMINOSIS
     Route: 048
     Dates: start: 20071120
  8. TRIFLUCAN [Concomitant]
     Indication: PROPHYLAXIS
     Route: 048
     Dates: start: 20071120

REACTIONS (3)
  - CHILLS [None]
  - PYREXIA [None]
  - SUBCUTANEOUS ABSCESS [None]
